FAERS Safety Report 6724223-1 (Version None)
Quarter: 2010Q2

REPORT INFORMATION
  Report Type: 
  Country: None (occurrence: None)
  Receive Date: 20100513
  Receipt Date: 20100506
  Transmission Date: 20101027
  Serious: Yes (Other)
  Sender: FDA-Public Use
  Company Number: JP-MERCK-1005USA00911

PATIENT
  Age: 78 Year
  Sex: Female

DRUGS (3)
  1. FOSAMAX [Suspect]
     Route: 048
  2. RISEDRONATE SODIUM [Suspect]
     Route: 048
  3. EVISTA [Concomitant]
     Route: 048

REACTIONS (1)
  - FEMUR FRACTURE [None]
